FAERS Safety Report 8097439-2 (Version None)
Quarter: 2012Q1

REPORT INFORMATION
  Report Type: 
  Country: None (occurrence: None)
  Receive Date: 20120128
  Receipt Date: 20110711
  Transmission Date: 20120608
  Serious: No
  Sender: FDA-Public Use
  Company Number: US-ABBOTT-11P-163-0838059-00

PATIENT
  Age: 61 Year
  Sex: Female

DRUGS (11)
  1. TRIAMTERENE AND HYDROCHLOROTHIAZIDE [Concomitant]
     Indication: HYPERTENSION
     Dosage: 37.5/25 DAILY
  2. LOPRESSOR [Suspect]
     Indication: TACHYCARDIA
  3. VIVELLE-DOT [Concomitant]
     Indication: HORMONE REPLACEMENT THERAPY
     Dosage: 0.1 MG WEEKLY
  4. NEURONTIN [Concomitant]
     Indication: ARTHRITIS
     Dosage: AT BEDTIME
  5. PLAQUENIL [Concomitant]
     Indication: ARTHRITIS
  6. TEKTURNA [Concomitant]
     Indication: HYPERTENSION
     Dosage: 300 MG DAILY
  7. FOLIC ACID [Concomitant]
     Indication: PRODUCT USED FOR UNKNOWN INDICATION
     Dosage: 1200 MICROGRAMS DAILY
  8. MIRAPEX [Concomitant]
     Indication: RESTLESS LEGS SYNDROME
  9. HUMIRA [Suspect]
     Indication: RHEUMATOID ARTHRITIS
     Dates: start: 20110701
  10. RELAFEN [Concomitant]
     Indication: PAIN
  11. ACIPHEX [Concomitant]
     Indication: GASTROOESOPHAGEAL REFLUX DISEASE

REACTIONS (9)
  - JOINT SWELLING [None]
  - FATIGUE [None]
  - DRUG INEFFECTIVE [None]
  - FEELING ABNORMAL [None]
  - OEDEMA [None]
  - OEDEMA PERIPHERAL [None]
  - TACHYCARDIA [None]
  - SOMNOLENCE [None]
  - PALPITATIONS [None]
